FAERS Safety Report 14908205 (Version 3)
Quarter: 2021Q1

REPORT INFORMATION
  Report Type: Other
  Country: US (occurrence: US)
  Receive Date: 20180517
  Receipt Date: 20210206
  Transmission Date: 20210419
  Serious: Yes (Other)
  Sender: FDA-Public Use
  Company Number: US-ROCHE-2110289

PATIENT
  Sex: Female
  Weight: 68.1 kg

DRUGS (19)
  1. XOLAIR [Suspect]
     Active Substance: OMALIZUMAB
     Indication: IDIOPATHIC URTICARIA
     Dosage: PFS, 30 DAYS SUPPLY, . START PRIOR TO 01/MAR/20218, LAST INJECTION DATE 31/DEC/2020, ANTICIPATED DAT
     Route: 058
  2. BENADRYL [Concomitant]
     Active Substance: DIPHENHYDRAMINE HYDROCHLORIDE
     Dosage: ONGOING:YES
  3. PRILOSEC [Concomitant]
     Active Substance: OMEPRAZOLE MAGNESIUM
     Dosage: ONGOING:YES
  4. PEPCID AC [Concomitant]
     Active Substance: FAMOTIDINE
     Route: 048
     Dates: start: 201209
  5. ASPIRIN. [Concomitant]
     Active Substance: ASPIRIN
     Dosage: ONGOING:NO
  6. IPRATROPIUM [Concomitant]
     Active Substance: IPRATROPIUM
     Dosage: ONGOING:YES
  7. XOPENEX [Concomitant]
     Active Substance: LEVALBUTEROL HYDROCHLORIDE
  8. XOLAIR [Suspect]
     Active Substance: OMALIZUMAB
     Indication: MASTOCYTOSIS
  9. FLONASE [Concomitant]
     Active Substance: FLUTICASONE PROPIONATE
     Dosage: ONGOING:YES
  10. DIFLUCAN [Concomitant]
     Active Substance: FLUCONAZOLE
     Dates: start: 2012
  11. XOLAIR [Suspect]
     Active Substance: OMALIZUMAB
     Indication: ASTHMA
     Dosage: REPORTED AS 600 MG
     Route: 058
     Dates: start: 2015
  12. XOLAIR [Suspect]
     Active Substance: OMALIZUMAB
     Indication: IDIOPATHIC URTICARIA
     Dosage: LAST INJECTION DATE: 17/APR/2018, 30 DAY SUPPLY.
     Route: 058
  13. XOLAIR [Suspect]
     Active Substance: OMALIZUMAB
     Indication: MASTOCYTOSIS
  14. DUONEB [Concomitant]
     Active Substance: ALBUTEROL SULFATE\IPRATROPIUM BROMIDE
     Dosage: ONGOING:YES
  15. ATARAX [Concomitant]
     Active Substance: HYDROXYZINE HYDROCHLORIDE
  16. XOLAIR [Suspect]
     Active Substance: OMALIZUMAB
     Indication: URTICARIA
     Route: 058
     Dates: start: 2015
  17. SALBUTAMOL [Concomitant]
     Active Substance: ALBUTEROL
     Dosage: ONGOING:YES
  18. ALVESCO [Concomitant]
     Active Substance: CICLESONIDE
     Dosage: ONGOING:YES
  19. ALEGRA [Concomitant]
     Route: 048
     Dates: start: 2012

REACTIONS (25)
  - Flushing [Recovered/Resolved]
  - Feeling abnormal [Unknown]
  - Postural orthostatic tachycardia syndrome [Unknown]
  - Urticaria [Recovered/Resolved]
  - Nausea [Not Recovered/Not Resolved]
  - Cognitive disorder [Unknown]
  - Laryngospasm [Unknown]
  - Gastroenteritis eosinophilic [Unknown]
  - Cerebral disorder [Unknown]
  - Impaired gastric emptying [Unknown]
  - Cough [Unknown]
  - Autonomic nervous system imbalance [Unknown]
  - Collagen disorder [Unknown]
  - Malaise [Unknown]
  - Gastric disorder [Not Recovered/Not Resolved]
  - Duodenal ulcer [Unknown]
  - Post-traumatic stress disorder [Not Recovered/Not Resolved]
  - Fatigue [Recovered/Resolved]
  - Epistaxis [Recovered/Resolved]
  - Muscle tightness [Not Recovered/Not Resolved]
  - Anaphylactic reaction [Unknown]
  - Wheezing [Unknown]
  - Mastocytosis [Unknown]
  - Ehlers-Danlos syndrome [Unknown]
  - Vocal cord dysfunction [Not Recovered/Not Resolved]

NARRATIVE: CASE EVENT DATE: 2016
